FAERS Safety Report 9020700 (Version 1)
Quarter: 2013Q1

REPORT INFORMATION
  Report Type: Spontaneous
  Country: US (occurrence: US)
  Receive Date: 20130119
  Receipt Date: 20130119
  Transmission Date: 20140127
  Serious: No
  Sender: FDA-Public Use
  Company Number: US-ALLERGAN-1206106US

PATIENT
  Age: 52 Year
  Sex: Male

DRUGS (2)
  1. BOTOX COSMETIC [Suspect]
     Indication: SKIN WRINKLING
     Dosage: 20 UNITS, SINGLE
     Route: 030
     Dates: start: 20120111, end: 20120111
  2. BOTOX COSMETIC [Suspect]
     Dosage: 15 UNK, UNK
     Route: 030
     Dates: start: 20120111, end: 20120111

REACTIONS (1)
  - Therapeutic response decreased [Unknown]
